FAERS Safety Report 6275334-9 (Version None)
Quarter: 2009Q3

REPORT INFORMATION
  Report Type: 
  Country: None (occurrence: None)
  Receive Date: 20090721
  Receipt Date: 20090713
  Transmission Date: 20100115
  Serious: Yes (Disabling)
  Sender: FDA-Public Use
  Company Number: B0583579A

PATIENT
  Age: 21 Year
  Sex: Female

DRUGS (5)
  1. VENTOLIN [Suspect]
     Indication: WHEEZING
     Route: 055
     Dates: start: 20090401
  2. LAMOTRIGINE [Concomitant]
     Indication: EPILEPSY
     Dosage: 350MG PER DAY
     Route: 048
  3. TOPIRAMATE [Concomitant]
     Indication: EPILEPSY
     Route: 048
  4. SERETIDE [Concomitant]
     Dosage: 300MCG PER DAY
     Route: 055
  5. MONTELUKAST [Concomitant]
     Route: 048

REACTIONS (1)
  - URINARY RETENTION [None]
